FAERS Safety Report 16803473 (Version 1)
Quarter: 2019Q3

REPORT INFORMATION
  Report Type: Spontaneous
  Country: CA (occurrence: CA)
  Receive Date: 20190913
  Receipt Date: 20190913
  Transmission Date: 20191005
  Serious: Yes (Hospitalization, Other)
  Sender: FDA-Public Use
  Company Number: CA-AUROBINDO-AUR-APL-2019-058947

PATIENT

DRUGS (18)
  1. OMALIZUMAB. [Suspect]
     Active Substance: OMALIZUMAB
     Dosage: UNK
     Route: 058
  2. SPIRIVA [Concomitant]
     Active Substance: TIOTROPIUM BROMIDE MONOHYDRATE
     Indication: PRODUCT USED FOR UNKNOWN INDICATION
     Dosage: UNK
     Route: 065
  3. OMALIZUMAB. [Suspect]
     Active Substance: OMALIZUMAB
     Indication: ASTHMA
     Dosage: 375 MILLIGRAM 1 EVERY 2 WEEK
     Route: 058
  4. HYDROXYZINE HYDROCHLORIDE. [Concomitant]
     Active Substance: HYDROXYZINE HYDROCHLORIDE
     Indication: PRODUCT USED FOR UNKNOWN INDICATION
     Dosage: 1.0 DOSAGE FORM, DAILY
     Route: 065
  5. OMALIZUMAB. [Suspect]
     Active Substance: OMALIZUMAB
     Dosage: 375 MILLIGRAM 1 EVERY 2 WEEK
     Route: 058
  6. OMALIZUMAB. [Suspect]
     Active Substance: OMALIZUMAB
     Dosage: UNK
     Route: 058
  7. OMALIZUMAB. [Suspect]
     Active Substance: OMALIZUMAB
     Dosage: UNK
     Route: 058
  8. OMALIZUMAB. [Suspect]
     Active Substance: OMALIZUMAB
     Dosage: 375 MILLIGRAM 1 EVERY 2 WEEK
     Route: 058
  9. MONTELUKAST [Suspect]
     Active Substance: MONTELUKAST SODIUM
     Indication: PRODUCT USED FOR UNKNOWN INDICATION
     Dosage: UNK
     Route: 065
  10. OMALIZUMAB. [Suspect]
     Active Substance: OMALIZUMAB
     Dosage: 375 MILLIGRAM 1 EVERY 2 WEEK
     Route: 058
  11. OMALIZUMAB. [Suspect]
     Active Substance: OMALIZUMAB
     Dosage: UNK
     Route: 058
  12. PREDNISONE. [Concomitant]
     Active Substance: PREDNISONE
     Indication: PRODUCT USED FOR UNKNOWN INDICATION
     Dosage: UNK
     Route: 065
  13. OMALIZUMAB. [Suspect]
     Active Substance: OMALIZUMAB
     Dosage: 375 MILLIGRAM 1 EVERY 2 WEEK
     Route: 058
  14. OMALIZUMAB. [Suspect]
     Active Substance: OMALIZUMAB
     Dosage: UNK
     Route: 058
  15. OMALIZUMAB. [Suspect]
     Active Substance: OMALIZUMAB
     Dosage: UNK
     Route: 058
  16. OMALIZUMAB. [Suspect]
     Active Substance: OMALIZUMAB
     Dosage: UNK
     Route: 058
  17. VENTOLIN [Concomitant]
     Active Substance: ALBUTEROL SULFATE
     Indication: PRODUCT USED FOR UNKNOWN INDICATION
     Dosage: UNK
     Route: 065
  18. ZENHALE [Concomitant]
     Active Substance: FORMOTEROL FUMARATE\MOMETASONE FUROATE
     Indication: PRODUCT USED FOR UNKNOWN INDICATION
     Dosage: 1.0 DOSAGE FORM, FOUR TIMES/DAY
     Route: 065

REACTIONS (15)
  - Coordination abnormal [Not Recovered/Not Resolved]
  - Dizziness [Not Recovered/Not Resolved]
  - Asthma [Not Recovered/Not Resolved]
  - Dyspnoea [Not Recovered/Not Resolved]
  - Headache [Not Recovered/Not Resolved]
  - Influenza [Not Recovered/Not Resolved]
  - Fatigue [Not Recovered/Not Resolved]
  - Cardiac disorder [Not Recovered/Not Resolved]
  - Decreased appetite [Not Recovered/Not Resolved]
  - Pneumonia [Not Recovered/Not Resolved]
  - Sputum discoloured [Not Recovered/Not Resolved]
  - Balance disorder [Not Recovered/Not Resolved]
  - Cough [Not Recovered/Not Resolved]
  - Benign prostatic hyperplasia [Not Recovered/Not Resolved]
  - Weight decreased [Not Recovered/Not Resolved]
